FAERS Safety Report 9915822 (Version 1)
Quarter: 2014Q1

REPORT INFORMATION
  Report Type: Spontaneous
  Country: US (occurrence: None)
  Receive Date: 20140219
  Receipt Date: 20140219
  Transmission Date: 20141002
  Serious: Yes (Life-Threatening, Hospitalization, Other)
  Sender: FDA-Public Use
  Company Number: None

PATIENT
  Age: 59 Year
  Sex: Male
  Weight: 58.97 kg

DRUGS (1)
  1. EDARBYCHLOR [Suspect]
     Route: 048
     Dates: start: 20131209, end: 20131217

REACTIONS (6)
  - Fall [None]
  - Dehydration [None]
  - Hypotension [None]
  - Volume blood decreased [None]
  - Blood sodium decreased [None]
  - Renal failure [None]
